FAERS Safety Report 5332119-5 (Version None)
Quarter: 2007Q2

REPORT INFORMATION
  Report Type: 
  Country: None (occurrence: None)
  Receive Date: 20070521
  Receipt Date: 20070503
  Transmission Date: 20071010
  Serious: Yes (Hospitalization)
  Sender: FDA-Public Use
  Company Number: 8023838

PATIENT
  Age: 53 Year
  Sex: Male

DRUGS (5)
  1. KEPPRA [Suspect]
     Indication: EPILEPSY
     Dosage: 1 G 1/D
     Dates: end: 20070418
  2. KEPPRA [Suspect]
     Indication: EPILEPSY
     Dosage: 2 G ONCE IV
     Route: 042
     Dates: start: 20070418, end: 20070418
  3. KEPPRA [Suspect]
     Indication: EPILEPSY
     Dosage: 1.5 G 1/D
  4. KEPPRA [Suspect]
     Indication: EPILEPSY
     Dosage: 2 G 1/D
  5. CARBAMAZEPINE [Concomitant]

REACTIONS (1)
  - STATUS EPILEPTICUS [None]
